FAERS Safety Report 21723946 (Version 3)
Quarter: 2022Q4

REPORT INFORMATION
  Report Type: Report from Study
  Country: CN (occurrence: CN)
  Receive Date: 20221213
  Receipt Date: 20221229
  Transmission Date: 20230113
  Serious: Yes (Hospitalization)
  Sender: FDA-Public Use
  Company Number: CN-PFIZER INC-PV202200115308

PATIENT
  Age: 75 Year
  Sex: Female
  Weight: 65 kg

DRUGS (10)
  1. PALBOCICLIB [Suspect]
     Active Substance: PALBOCICLIB
     Indication: Breast cancer metastatic
     Dosage: 125 MG, 1 IN 1 D, MOST RECENT DOSE PRIOR TO AE/SAE 13OCT2022, 22NOV2022
     Route: 048
     Dates: start: 20220727, end: 20221016
  2. PLACEBO [Suspect]
     Active Substance: UNSPECIFIED INGREDIENT
     Indication: Breast cancer metastatic
     Dosage: UNK UNK, 1X/DAY
     Route: 048
     Dates: start: 20220727, end: 20221020
  3. LETROZOLE [Suspect]
     Active Substance: LETROZOLE
     Indication: Breast cancer metastatic
     Dosage: 2.5 MG, 1X/DAY
     Route: 048
     Dates: start: 20220727, end: 20221020
  4. NIFEDIPINE [Concomitant]
     Active Substance: NIFEDIPINE
     Indication: Hypertension
     Dosage: 10 MG, 1 IN 1 D, SUSTAINED RELEASE
     Route: 048
     Dates: start: 2000
  5. MONTMORILLONITE [Concomitant]
     Active Substance: MONTMORILLONITE
     Indication: Diarrhoea
     Dosage: 3 G, 2X/DAY, POWDER
     Route: 048
     Dates: start: 20220802
  6. NORFLOXACIN [Concomitant]
     Active Substance: NORFLOXACIN
     Indication: Diarrhoea
     Dosage: 0.4 G, 2 IN 1 D
     Route: 048
     Dates: start: 20220702
  7. GRANULOCYTE COLONY-STIMULATING FACTOR NOS [Concomitant]
     Active Substance: GRANULOCYTE COLONY-STIMULATING FACTOR NOS
     Dosage: 150 UG, 1X/DAY
     Route: 055
     Dates: start: 20220922, end: 20220922
  8. DICLOFENAC SODIUM [Concomitant]
     Active Substance: DICLOFENAC SODIUM
     Indication: Cancer pain
     Dosage: 75 MG, 2 IN 1 D
     Route: 048
     Dates: start: 20220729, end: 20221021
  9. LIDOCAINE HYDROCHLORIDE [Concomitant]
     Active Substance: LIDOCAINE HYDROCHLORIDE
     Dosage: 0.2 G, 1 IN 1 D
     Route: 042
     Dates: start: 20221025, end: 20221025
  10. DENOSUMAB [Concomitant]
     Active Substance: DENOSUMAB
     Dosage: UNK

REACTIONS (3)
  - Thoracic vertebral fracture [Recovered/Resolved]
  - Spinal compression fracture [Recovered/Resolved]
  - Venous thrombosis limb [Recovered/Resolved]

NARRATIVE: CASE EVENT DATE: 20221017
